FAERS Safety Report 18819618 (Version 2)
Quarter: 2021Q1

REPORT INFORMATION
  Report Type: Spontaneous
  Country: AU (occurrence: AU)
  Receive Date: 20210202
  Receipt Date: 20210224
  Transmission Date: 20210419
  Serious: Yes (Other)
  Sender: FDA-Public Use
  Company Number: AU-SA-2021SA027457

PATIENT
  Age: 49 Year
  Sex: Male

DRUGS (3)
  1. FLUDARABINE PHOSPHATE. [Suspect]
     Active Substance: FLUDARABINE PHOSPHATE
     Indication: BONE MARROW CONDITIONING REGIMEN
  2. CYCLOPHOSPHAMIDE. [Suspect]
     Active Substance: CYCLOPHOSPHAMIDE
     Indication: BONE MARROW CONDITIONING REGIMEN
  3. THYMOGLOBULINE [Suspect]
     Active Substance: LAPINE T-LYMPHOCYTE IMMUNE GLOBULIN
     Indication: BONE MARROW CONDITIONING REGIMEN

REACTIONS (8)
  - Skin ulcer [Recovered/Resolved]
  - Peripheral swelling [Recovered/Resolved]
  - Enterobacter infection [Recovered/Resolved]
  - Skin lesion [Recovered/Resolved]
  - Off label use [Recovered/Resolved]
  - Soft tissue infection [Recovered/Resolved]
  - Erythema [Recovered/Resolved]
  - Staphylococcal infection [Recovered/Resolved]
